FAERS Safety Report 12268065 (Version 1)
Quarter: 2016Q2

REPORT INFORMATION
  Report Type: Other
  Country: CH (occurrence: CH)
  Receive Date: 20160414
  Receipt Date: 20160414
  Transmission Date: 20160815
  Serious: Yes (Hospitalization)
  Sender: FDA-Public Use
  Company Number: CH-SA-2016SA070472

PATIENT
  Age: 82 Year
  Sex: Female
  Weight: 67.9 kg

DRUGS (9)
  1. RENAGEL [Concomitant]
     Active Substance: SEVELAMER HYDROCHLORIDE
     Route: 048
  2. PANTOZOL [Concomitant]
     Active Substance: PANTOPRAZOLE SODIUM
     Route: 048
  3. CALCIUM CARBONATE. [Concomitant]
     Active Substance: CALCIUM CARBONATE
     Route: 048
  4. PLAVIX [Suspect]
     Active Substance: CLOPIDOGREL BISULFATE
     Indication: ANTIPLATELET THERAPY
     Route: 048
  5. MARCOUMAR [Suspect]
     Active Substance: PHENPROCOUMON
     Route: 048
     Dates: end: 20151227
  6. LASIX [Concomitant]
     Active Substance: FUROSEMIDE
     Route: 048
  7. REMERON [Concomitant]
     Active Substance: MIRTAZAPINE
     Route: 048
  8. METOLAZONE. [Concomitant]
     Active Substance: METOLAZONE
     Route: 048
  9. MIMPARA [Concomitant]
     Active Substance: CINACALCET HYDROCHLORIDE
     Route: 048

REACTIONS (2)
  - Epistaxis [Recovered/Resolved]
  - Anaemia [Not Recovered/Not Resolved]

NARRATIVE: CASE EVENT DATE: 20151227
